FAERS Safety Report 7297935-1 (Version None)
Quarter: 2011Q1

REPORT INFORMATION
  Report Type: 
  Country: None (occurrence: None)
  Receive Date: 20110217
  Receipt Date: 20110209
  Transmission Date: 20110831
  Serious: Yes (Hospitalization, Other)
  Sender: FDA-Public Use
  Company Number: PL-JNJFOC-20110204200

PATIENT
  Age: 53 Year
  Sex: Female
  Weight: 62 kg

DRUGS (6)
  1. OMEPRAZOLE [Concomitant]
     Indication: GASTROINTESTINAL DISORDER THERAPY
     Route: 048
  2. LEFLUNOMIDE [Concomitant]
     Indication: RHEUMATOID ARTHRITIS
     Route: 048
  3. METYPRED [Concomitant]
     Indication: RHEUMATOID ARTHRITIS
     Route: 048
  4. GOLIMUMAB [Suspect]
     Indication: RHEUMATOID ARTHRITIS
     Route: 058
  5. ALENDRONATE SODIUM [Concomitant]
     Indication: OSTEOPOROSIS
     Route: 048
  6. DICLOFENAC SODIUM [Concomitant]
     Indication: RHEUMATOID ARTHRITIS
     Route: 048

REACTIONS (1)
  - OSTEITIS [None]
